FAERS Safety Report 19114068 (Version 1)
Quarter: 2021Q2

REPORT INFORMATION
  Report Type: Spontaneous
  Country: US (occurrence: US)
  Receive Date: 20210409
  Receipt Date: 20210409
  Transmission Date: 20210717
  Serious: No
  Sender: FDA-Public Use
  Company Number: None

PATIENT
  Age: 73 Year
  Sex: Male
  Weight: 67 kg

DRUGS (1)
  1. MYXREDLIN [Suspect]
     Active Substance: INSULIN HUMAN
     Indication: HYPERGLYCAEMIA
     Dosage: ?          OTHER FREQUENCY:CONT INFUSION;?
     Route: 042
     Dates: start: 20210404, end: 20210405

REACTIONS (2)
  - Blood glucose decreased [None]
  - Blood glucose increased [None]

NARRATIVE: CASE EVENT DATE: 20210404
